FAERS Safety Report 4901368-X (Version None)
Quarter: 2006Q1

REPORT INFORMATION
  Report Type: 
  Country: None (occurrence: None)
  Receive Date: 20060202
  Receipt Date: 20060118
  Transmission Date: 20060701
  Serious: Yes (Disabling)
  Sender: FDA-Public Use
  Company Number: ABTXP-06-0031

PATIENT
  Age: 55 Year
  Sex: Female
  Weight: 56.8 kg

DRUGS (11)
  1. ABRAXANE [Suspect]
     Indication: BREAST CANCER METASTATIC
     Dosage: SEE IMAGE
     Route: 041
     Dates: end: 20051209
  2. ABRAXANE [Suspect]
     Indication: BREAST CANCER METASTATIC
     Dosage: SEE IMAGE
     Route: 041
     Dates: start: 20051006
  3. LEVOXYL [Concomitant]
  4. ZOFRAN [Concomitant]
  5. ZANTAC [Concomitant]
  6. COMPLEX (BECOSYM FORTE) [Concomitant]
  7. FEMARA [Concomitant]
  8. XANAX [Concomitant]
  9. BENADRYL [Concomitant]
  10. KYTRIL [Concomitant]
  11. AREDIA [Concomitant]

REACTIONS (3)
  - DYSPHAGIA [None]
  - DYSPHONIA [None]
  - VOCAL CORD PARESIS [None]
